FAERS Safety Report 9613120 (Version 2)
Quarter: 2013Q4

REPORT INFORMATION
  Report Type: Spontaneous
  Country: US (occurrence: None)
  Receive Date: 20130918
  Receipt Date: 20131002
  Transmission Date: 20140711
  Serious: Yes (Hospitalization)
  Sender: FDA-Public Use
  Company Number: 2013037017

PATIENT
  Sex: Male
  Weight: 86 kg

DRUGS (1)
  1. ZEMAIRA [Suspect]
     Indication: ALPHA-1 ANTI-TRYPSIN DEFICIENCY
     Route: 042

REACTIONS (8)
  - Pyrexia [None]
  - Headache [None]
  - Arthralgia [None]
  - Chills [None]
  - Myalgia [None]
  - Muscle spasms [None]
  - Immobile [None]
  - Pneumonia [None]
